FAERS Safety Report 6251014-0 (Version None)
Quarter: 2009Q2

REPORT INFORMATION
  Report Type: 
  Country: None (occurrence: None)
  Receive Date: 20090630
  Receipt Date: 20090330
  Transmission Date: 20091009
  Serious: No
  Sender: FDA-Public Use
  Company Number: US-BAYER-200917537NA

PATIENT
  Age: 32 Year

DRUGS (1)
  1. ULTRAVIST 300 [Suspect]
     Indication: DRUG USE FOR UNKNOWN INDICATION
     Dosage: TOTAL DAILY DOSE: 125 ML
     Dates: start: 20090327, end: 20090327

REACTIONS (2)
  - THROAT IRRITATION [None]
  - URTICARIA [None]
